FAERS Safety Report 8771523 (Version 3)
Quarter: 2014Q2

REPORT INFORMATION
  Report Type: Report from Study
  Country: BR (occurrence: BR)
  Receive Date: 20120906
  Receipt Date: 20140513
  Transmission Date: 20141212
  Serious: Yes (Hospitalization)
  Sender: FDA-Public Use
  Company Number: BR-GLAXOSMITHKLINE-Z0016754A

PATIENT
  Age: 83 Year
  Sex: Male
  Weight: 63 kg

DRUGS (4)
  1. PLACEBO [Suspect]
     Indication: ACUTE CORONARY SYNDROME
     Dates: start: 20110816
  2. CARVEDILOL [Concomitant]
     Indication: CARDIAC FAILURE
     Dosage: 3.25MG TWICE PER DAY
     Route: 048
     Dates: start: 20120823, end: 20120823
  3. CARVEDILOL [Concomitant]
     Indication: CARDIAC FAILURE
     Dosage: 6.25MG PER DAY
     Route: 048
     Dates: start: 20120824
  4. AMLODIPINE [Concomitant]
     Indication: HYPERTENSION
     Dosage: 2.5MG PER DAY
     Route: 048
     Dates: start: 20120823, end: 20120823

REACTIONS (1)
  - Renal failure acute [Recovered/Resolved]
